FAERS Safety Report 7862414-7 (Version None)
Quarter: 2011Q4

REPORT INFORMATION
  Report Type: 
  Country: None (occurrence: None)
  Receive Date: 20111025
  Receipt Date: 20111018
  Transmission Date: 20120403
  Serious: Yes (Other)
  Sender: FDA-Public Use
  Company Number: DSA_47490_2011

PATIENT
  Sex: Female

DRUGS (17)
  1. BISOPROLOL FUMARATE [Concomitant]
  2. BIAXIN XL [Concomitant]
  3. ALLEGRA D 24 HOUR [Concomitant]
  4. LACTULOSE [Concomitant]
  5. CITALOPRAM HYDROBROMIDE [Concomitant]
  6. ESTROGENIC SUBSTANCE [Concomitant]
  7. BACLOFEN [Concomitant]
  8. PLAVIX [Concomitant]
  9. GABAPENTIN [Concomitant]
  10. XENAZINE [Suspect]
     Indication: HUNTINGTON'S DISEASE
     Dosage: SEE IMAGE
     Route: 048
     Dates: start: 20110701, end: 20110714
  11. XENAZINE [Suspect]
     Indication: HUNTINGTON'S DISEASE
     Dosage: SEE IMAGE
     Route: 048
     Dates: start: 20110613
  12. XENAZINE [Suspect]
     Indication: HUNTINGTON'S DISEASE
     Dosage: SEE IMAGE
     Route: 048
     Dates: start: 20110729, end: 20110801
  13. XENAZINE [Suspect]
     Indication: HUNTINGTON'S DISEASE
     Dosage: SEE IMAGE
     Route: 048
     Dates: start: 20110714, end: 20110729
  14. CITALOPRAM HYDROBROMIDE [Concomitant]
  15. TRILEPTAL [Concomitant]
  16. CODICLEAR DH [Concomitant]
  17. PLAVIX [Concomitant]

REACTIONS (9)
  - DEPRESSION [None]
  - CRYING [None]
  - HYPOAESTHESIA [None]
  - AFFECTIVE DISORDER [None]
  - COMMUNICATION DISORDER [None]
  - DIZZINESS [None]
  - BALANCE DISORDER [None]
  - COGNITIVE DISORDER [None]
  - DRUG EFFECT DECREASED [None]
